FAERS Safety Report 7993158-9 (Version None)
Quarter: 2011Q4

REPORT INFORMATION
  Report Type: 
  Country: None (occurrence: None)
  Receive Date: 20111219
  Receipt Date: 20101223
  Transmission Date: 20120403
  Serious: No
  Sender: FDA-Public Use
  Company Number: US-ASTRAZENECA-2010SE60776

PATIENT
  Age: 60 Year
  Sex: Male

DRUGS (1)
  1. CRESTOR [Suspect]
     Dosage: DAILY
     Route: 048

REACTIONS (2)
  - WEIGHT DECREASED [None]
  - WEIGHT INCREASED [None]
